FAERS Safety Report 10713479 (Version 1)
Quarter: 2015Q1

REPORT INFORMATION
  Report Type: Report from Study
  Country: NL (occurrence: NL)
  Receive Date: 20150115
  Receipt Date: 20150115
  Transmission Date: 20150721
  Serious: Yes (Other)
  Sender: FDA-Public Use
  Company Number: NL-MYLANLABS-2015M1000573

PATIENT

DRUGS (2)
  1. HALOPERIDOL. [Suspect]
     Active Substance: HALOPERIDOL
     Dosage: 0.03 MG/KG/DAY
     Route: 065
  2. HALOPERIDOL. [Suspect]
     Active Substance: HALOPERIDOL
     Dosage: INCREASED TO 0.025 MG/KG/DAY ON DAY 2 AND 3

REACTIONS (2)
  - Oculogyric crisis [Recovered/Resolved]
  - Cogwheel rigidity [Recovered/Resolved]
